FAERS Safety Report 5619403-2 (Version None)
Quarter: 2008Q1

REPORT INFORMATION
  Report Type: 
  Country: None (occurrence: None)
  Receive Date: 20080114
  Receipt Date: 20070803
  Transmission Date: 20080703
  Serious: Yes (Hospitalization, Disabling)
  Sender: FDA-Public Use
  Company Number: 2007BH006812

PATIENT
  Age: 47 Year
  Sex: Female
  Weight: 127 kg

DRUGS (5)
  1. VANCOMYCIN HCL [Suspect]
     Indication: ABSCESS
     Dosage: 1 GM;2X A DAY;IV
     Route: 042
     Dates: start: 20070709, end: 20070712
  2. VANCOMYCIN HCL [Suspect]
     Indication: NECROSIS
     Dosage: 1 GM;2X A DAY;IV
     Route: 042
     Dates: start: 20070709, end: 20070712
  3. GENTAMICIN [Suspect]
     Indication: ABSCESS
     Dosage: 80 MG;ONCE;ICAV
     Dates: start: 20070710, end: 20070710
  4. GENTAMICIN [Suspect]
     Indication: NECROSIS
     Dosage: 80 MG;ONCE;ICAV
     Dates: start: 20070710, end: 20070710
  5. INSULIN [Concomitant]

REACTIONS (1)
  - RENAL FAILURE ACUTE [None]
